FAERS Safety Report 7197567-X (Version None)
Quarter: 2010Q4

REPORT INFORMATION
  Report Type: 
  Country: None (occurrence: None)
  Receive Date: 20101227
  Receipt Date: 20101216
  Transmission Date: 20110411
  Serious: Yes (Other)
  Sender: FDA-Public Use
  Company Number: US-JNJFOC-20100201112

PATIENT
  Sex: Male
  Weight: 99.79 kg

DRUGS (4)
  1. EXTRA STRENGTH TYLENOL [Suspect]
     Indication: MYALGIA
     Dosage: 1000 MG EVERY 4-6 HOURS AS NEEDED
     Route: 048
  2. EXTRA STRENGTH TYLENOL [Suspect]
     Indication: PAIN
     Dosage: 1000 MG EVERY 4-6 HOURS AS NEEDED
     Route: 048
  3. TYLENOL 8 HOUR MUSCLES + PAIN [Suspect]
     Indication: PAIN
     Dosage: 1300 MG EVERY 8 HOURS AS NEEDED
     Route: 048
  4. TYLENOL 8 HOUR MUSCLES + PAIN [Suspect]
     Indication: MYALGIA
     Dosage: 1300 MG EVERY 8 HOURS AS NEEDED
     Route: 048

REACTIONS (2)
  - HELICOBACTER GASTRITIS [None]
  - TRANSMISSION OF AN INFECTIOUS AGENT VIA A MEDICINAL PRODUCT [None]
